FAERS Safety Report 8419535-X (Version None)
Quarter: 2012Q2

REPORT INFORMATION
  Report Type: 
  Country: None (occurrence: None)
  Receive Date: 20120607
  Receipt Date: 20120120
  Transmission Date: 20120825
  Serious: No
  Sender: FDA-Public Use
  Company Number: US-BRISTOL-MYERS SQUIBB COMPANY-16360067

PATIENT
  Age: 44 Year
  Sex: Female
  Weight: 81 kg

DRUGS (2)
  1. SUSTIVA [Suspect]
     Indication: HIV INFECTION
     Dates: start: 20040101
  2. EPZICOM [Suspect]
     Indication: HIV INFECTION

REACTIONS (2)
  - ABNORMAL DREAMS [None]
  - DRUG SCREEN FALSE POSITIVE [None]
